FAERS Safety Report 5627726-6 (Version None)
Quarter: 2008Q1

REPORT INFORMATION
  Report Type: 
  Country: None (occurrence: None)
  Receive Date: 20080215
  Receipt Date: 20080205
  Transmission Date: 20080703
  Serious: Yes (Death)
  Sender: FDA-Public Use
  Company Number: US-PURDUE-USA_2008_0031437

PATIENT
  Age: 38 Year
  Sex: Male
  Weight: 145 kg

DRUGS (8)
  1. DILAUDID - HP INJECTION [Suspect]
     Indication: PAIN
     Dosage: 48.382 MG, SEE TEXT
     Route: 037
     Dates: start: 20040101, end: 20040630
  2. GABAPENTIN [Concomitant]
  3. AMITRIPTYLINE HCL [Concomitant]
  4. TIZANIDINE HCL [Concomitant]
  5. BUPIVACAINE [Suspect]
     Indication: PAIN
     Route: 037
     Dates: start: 20040101
  6. CLONIDINE [Suspect]
     Indication: PAIN
     Route: 037
     Dates: start: 20040101
  7. GLUCOPHAGE [Concomitant]
     Indication: DIABETES MELLITUS
     Route: 048
  8. ALTACE [Concomitant]

REACTIONS (11)
  - ARTERIOSCLEROSIS CORONARY ARTERY [None]
  - CARDIAC ARREST [None]
  - DYSARTHRIA [None]
  - DYSPNOEA [None]
  - GAIT DISTURBANCE [None]
  - HYPERHIDROSIS [None]
  - MUSCLE SPASMS [None]
  - MYOGLOBIN BLOOD INCREASED [None]
  - SKIN DISCOLOURATION [None]
  - SOMNOLENCE [None]
  - VISION BLURRED [None]
